FAERS Safety Report 6826330-1 (Version None)
Quarter: 2010Q3

REPORT INFORMATION
  Report Type: 
  Country: None (occurrence: None)
  Receive Date: 20100709
  Receipt Date: 20100706
  Transmission Date: 20110219
  Serious: Yes (Death)
  Sender: FDA-Public Use
  Company Number: PHHY2009CA47077

PATIENT
  Sex: Male

DRUGS (4)
  1. EXJADE [Suspect]
     Indication: MYELODYSPLASTIC SYNDROME
     Dosage: 2650MG, DAILY
     Route: 048
     Dates: start: 20091005
  2. EXJADE [Suspect]
     Indication: IRON OVERLOAD
     Dosage: 2625 MG DAILY
     Route: 048
     Dates: start: 20090901
  3. EXJADE [Suspect]
     Dosage: 2000 MG, DAILY
     Route: 048
  4. EXJADE [Suspect]
     Dosage: 2650 MG, UNK
     Route: 048

REACTIONS (5)
  - ABDOMINAL PAIN UPPER [None]
  - BLOOD IRON INCREASED [None]
  - DEATH [None]
  - DIARRHOEA [None]
  - INCONTINENCE [None]
